FAERS Safety Report 9468271 (Version 1)
Quarter: 2013Q3

REPORT INFORMATION
  Report Type: Spontaneous
  Country: GR (occurrence: GR)
  Receive Date: 20130821
  Receipt Date: 20130821
  Transmission Date: 20140515
  Serious: Yes (Other)
  Sender: FDA-Public Use
  Company Number: GR-PFIZER INC-2013239786

PATIENT
  Age: 87 Year
  Sex: Male

DRUGS (6)
  1. LYRICA [Suspect]
     Indication: DIABETIC NEUROPATHY
     Dosage: 75 MG, 1X/DAY
     Dates: start: 2006
  2. TROFOCARD [Concomitant]
     Dosage: UNK
  3. SEVIKAR [Concomitant]
     Dosage: UNK
  4. MODURETIC [Concomitant]
     Dosage: UNK
  5. PANTIUM [Concomitant]
     Dosage: UNK
  6. ADENURIC [Concomitant]
     Dosage: UNK

REACTIONS (4)
  - Cardiac disorder [Unknown]
  - Rash [Not Recovered/Not Resolved]
  - Rash [Not Recovered/Not Resolved]
  - Blood uric acid increased [Unknown]
